FAERS Safety Report 7323370-3 (Version None)
Quarter: 2011Q1

REPORT INFORMATION
  Report Type: 
  Country: None (occurrence: None)
  Receive Date: 20110301
  Receipt Date: 20110202
  Transmission Date: 20110831
  Serious: Yes (Other)
  Sender: FDA-Public Use
  Company Number: RU-JNJFOC-20110205901

PATIENT
  Age: 49 Year
  Sex: Female

DRUGS (3)
  1. OMEZ [Concomitant]
  2. REMICADE [Suspect]
     Indication: PRODUCT USED FOR UNKNOWN INDICATION
     Route: 042
  3. PRILOSEC [Concomitant]

REACTIONS (4)
  - HYPOTONIA [None]
  - PYREXIA [None]
  - NAUSEA [None]
  - CONVULSION [None]
